FAERS Safety Report 11401698 (Version 1)
Quarter: 2015Q3

REPORT INFORMATION
  Report Type: Spontaneous
  Country: SK (occurrence: SK)
  Receive Date: 20150821
  Receipt Date: 20150821
  Transmission Date: 20151125
  Serious: Yes (Hospitalization)
  Sender: FDA-Public Use
  Company Number: SK-PFIZER INC-2015268346

PATIENT
  Age: 65 Year
  Sex: Female

DRUGS (1)
  1. XALKORI [Suspect]
     Active Substance: CRIZOTINIB
     Dosage: UNK
     Dates: start: 20150622, end: 20150718

REACTIONS (2)
  - Ischaemic stroke [Unknown]
  - Amylase increased [Unknown]
